FAERS Safety Report 14184019 (Version 1)
Quarter: 2017Q4

REPORT INFORMATION
  Report Type: Spontaneous
  Country: US (occurrence: US)
  Receive Date: 20171113
  Receipt Date: 20171113
  Transmission Date: 20180321
  Serious: No
  Sender: FDA-Public Use
  Company Number: US-BAYER-2017-218387

PATIENT
  Sex: Female

DRUGS (16)
  1. BETASERON [Suspect]
     Active Substance: INTERFERON BETA-1B
     Dosage: 0.75 ML QOD, WEEKS 5-6
  2. MAGNESIUM [Concomitant]
     Active Substance: MAGNESIUM
  3. ASPIRIN. [Concomitant]
     Active Substance: ASPIRIN
  4. TOPIRAMATE. [Concomitant]
     Active Substance: TOPIRAMATE
  5. BETASERON [Suspect]
     Active Substance: INTERFERON BETA-1B
     Dosage: 1 ML QOD, WEEKS 7+
     Route: 058
     Dates: start: 201711
  6. LIPITOR [Concomitant]
     Active Substance: ATORVASTATIN CALCIUM
  7. BUSPIRONE [Concomitant]
     Active Substance: BUSPIRONE HYDROCHLORIDE
     Dosage: UNK
  8. VERAPAMIL [Concomitant]
     Active Substance: VERAPAMIL HYDROCHLORIDE
  9. CLINDAMYCIN. [Concomitant]
     Active Substance: CLINDAMYCIN
  10. BETASERON [Suspect]
     Active Substance: INTERFERON BETA-1B
     Dosage: 0.25 ML QOD, WEEKS 1-2
  11. BETASERON [Suspect]
     Active Substance: INTERFERON BETA-1B
     Dosage: 0.5 ML QOD, WEEKS 3-4
  12. MICROGENICS PROBIOTIC 8 [Concomitant]
     Active Substance: LACTOBACILLUS ACIDOPHILUS
  13. BUPROPION. [Concomitant]
     Active Substance: BUPROPION
  14. SUMATRIPTAN. [Concomitant]
     Active Substance: SUMATRIPTAN
  15. LORAZEPAM. [Concomitant]
     Active Substance: LORAZEPAM
  16. VENTOLAIR [Concomitant]
     Active Substance: BECLOMETHASONE DIPROPIONATE

REACTIONS (2)
  - Injection site pain [None]
  - Injection site bruising [None]
